FAERS Safety Report 9156189 (Version 1)
Quarter: 2013Q1

REPORT INFORMATION
  Report Type: Spontaneous
  Country: US (occurrence: US)
  Receive Date: 20130123
  Receipt Date: 20130123
  Transmission Date: 20140127
  Serious: No
  Sender: FDA-Public Use
  Company Number: US-BRACCO-007770

PATIENT
  Age: 37 Year
  Sex: Male

DRUGS (2)
  1. MULTIHANCE [Suspect]
     Indication: NUCLEAR MAGNETIC RESONANCE IMAGING BRAIN
     Route: 042
     Dates: start: 20120321, end: 20120321
  2. MULTIHANCE [Suspect]
     Indication: PRODUCT USED FOR UNKNOWN INDICATION
     Route: 042
     Dates: start: 20120321, end: 20120321

REACTIONS (1)
  - Erythema [Recovered/Resolved]
